FAERS Safety Report 11868476 (Version 13)
Quarter: 2020Q1

REPORT INFORMATION
  Report Type: Report from Study
  Country: CA (occurrence: CA)
  Receive Date: 20151225
  Receipt Date: 20200225
  Transmission Date: 20200409
  Serious: Yes (Hospitalization, Other)
  Sender: FDA-Public Use
  Company Number: CA-ROCHE-1367564

PATIENT
  Age: 59 Year
  Sex: Female
  Weight: 88 kg

DRUGS (17)
  1. METHYLPREDNISOLONE. [Concomitant]
     Active Substance: METHYLPREDNISOLONE
     Indication: PREMEDICATION
     Route: 042
     Dates: start: 20131016
  2. PERINDOPRIL [Concomitant]
     Active Substance: PERINDOPRIL
  3. EZETROL [Concomitant]
     Active Substance: EZETIMIBE
  4. PREDNISONE. [Concomitant]
     Active Substance: PREDNISONE
     Indication: ARTHRITIS
     Route: 065
  5. APO-METFORMIN [Concomitant]
     Active Substance: METFORMIN HYDROCHLORIDE
  6. JANUMET [Concomitant]
     Active Substance: METFORMIN HYDROCHLORIDE\SITAGLIPTIN PHOSPHATE
  7. ENBREL [Concomitant]
     Active Substance: ETANERCEPT
  8. METFORMIN [Concomitant]
     Active Substance: METFORMIN HYDROCHLORIDE
     Route: 065
  9. ACETYLSALICYLIC ACID [Concomitant]
     Active Substance: ASPIRIN
     Route: 065
  10. CRESTOR [Concomitant]
     Active Substance: ROSUVASTATIN CALCIUM
  11. TIAZAC [Concomitant]
     Active Substance: DILTIAZEM HYDROCHLORIDE
  12. IBUPROFEN. [Concomitant]
     Active Substance: IBUPROFEN
  13. DIPHENHYDRAMINE HCL [Concomitant]
     Active Substance: DIPHENHYDRAMINE HYDROCHLORIDE
     Indication: PREMEDICATION
     Route: 048
     Dates: start: 20131016
  14. FOLIC ACID. [Concomitant]
     Active Substance: FOLIC ACID
  15. ACETAMINOPHEN. [Concomitant]
     Active Substance: ACETAMINOPHEN
     Indication: PREMEDICATION
     Route: 048
     Dates: start: 20131016
  16. RITUXAN [Suspect]
     Active Substance: RITUXIMAB
     Indication: RHEUMATOID ARTHRITIS
     Dosage: DATE OF MOST RECENT RITUXIMAB INFUSION: 03/MAR/2014?DATE OF MOST RECENT RITUXIMAB INFUSION: 26/FEB/2
     Route: 042
     Dates: start: 20131016
  17. METHOTREXATE. [Concomitant]
     Active Substance: METHOTREXATE

REACTIONS (16)
  - Intestinal obstruction [Unknown]
  - Blood pressure increased [Unknown]
  - Blood pressure systolic increased [Unknown]
  - Adenocarcinoma [Unknown]
  - Cataract [Unknown]
  - Weight increased [Unknown]
  - Blood test abnormal [Unknown]
  - Pain [Not Recovered/Not Resolved]
  - Hernia [Not Recovered/Not Resolved]
  - Weight decreased [Unknown]
  - Rectal cancer [Not Recovered/Not Resolved]
  - Nausea [Unknown]
  - Arthritis [Unknown]
  - Abdominal pain lower [Recovered/Resolved]
  - Blood pressure diastolic decreased [Unknown]
  - Arthritis [Unknown]

NARRATIVE: CASE EVENT DATE: 201403
